FAERS Safety Report 23426921 (Version 5)
Quarter: 2024Q1

REPORT INFORMATION
  Report Type: Spontaneous
  Country: KR (occurrence: KR)
  Receive Date: 20240122
  Receipt Date: 20240302
  Transmission Date: 20240410
  Serious: Yes (Hospitalization)
  Sender: FDA-Public Use
  Company Number: KR-Accord-401767

PATIENT
  Age: 55 Year
  Sex: Female
  Weight: 41.1 kg

DRUGS (4)
  1. FLUOROURACIL [Suspect]
     Active Substance: FLUOROURACIL
     Indication: Squamous cell carcinoma of head and neck
     Dosage: CONTINUOUS INFUSION FOR 4 DAYS ON DAYS 1,2,3,4 OF EVERY 3 WEEKS CYCLE (1Q3W)
     Route: 042
     Dates: start: 20231211, end: 20231215
  2. CISPLATIN [Suspect]
     Active Substance: CISPLATIN
     Indication: Squamous cell carcinoma of head and neck
     Dosage: 1Q3W
     Route: 042
     Dates: start: 20231211, end: 20240108
  3. PEMBROLIZUMAB [Concomitant]
     Active Substance: PEMBROLIZUMAB
     Indication: Squamous cell carcinoma of head and neck
     Dosage: 1Q3W
     Route: 042
     Dates: start: 20231211, end: 20240108
  4. FLUOROURACIL [Suspect]
     Active Substance: FLUOROURACIL
     Indication: Squamous cell carcinoma of head and neck
     Dosage: CONTINUOUS INFUSION FOR 4 DAYS ON DAYS 1,2,3,4 OF EVERY 3 WEEKS CYCLE (1Q3W)
     Route: 042
     Dates: start: 20240108, end: 20240112

REACTIONS (1)
  - Pyrexia [Recovered/Resolved]

NARRATIVE: CASE EVENT DATE: 20240101
